FAERS Safety Report 5140421-5 (Version None)
Quarter: 2006Q4

REPORT INFORMATION
  Report Type: 
  Country: None (occurrence: None)
  Receive Date: 20061031
  Receipt Date: 20061023
  Transmission Date: 20070319
  Serious: Yes (Other)
  Sender: FDA-Public Use
  Company Number: BR-BRISTOL-MYERS SQUIBB COMPANY-13556238

PATIENT
  Age: 26 Year
  Sex: Male
  Weight: 72 kg

DRUGS (3)
  1. REYATAZ [Suspect]
     Indication: HIV INFECTION
     Route: 048
     Dates: start: 20050411
  2. RITONAVIR [Concomitant]
  3. LAMIVUDINE AND ZIDOVUDINE [Concomitant]
     Dosage: ZIDOVUDINE 300 MG + LAMIVUDINE 150 MG
     Dates: start: 20050407

REACTIONS (4)
  - HEPATITIS ACUTE [None]
  - HYPERBILIRUBINAEMIA [None]
  - JAUNDICE [None]
  - TRANSAMINASES INCREASED [None]
